FAERS Safety Report 23876295 (Version 3)
Quarter: 2024Q3

REPORT INFORMATION
  Report Type: Report from Study
  Country: CN (occurrence: CN)
  Receive Date: 20240520
  Receipt Date: 20240723
  Transmission Date: 20241016
  Serious: Yes (Hospitalization)
  Sender: JOHNSON AND JOHNSON
  Company Number: CN-JNJFOC-20240534990

PATIENT
  Age: 31 Year
  Sex: Male
  Weight: 69 kg

DRUGS (3)
  1. SPORANOX [Suspect]
     Active Substance: ITRACONAZOLE
     Indication: Product used for unknown indication
     Route: 048
     Dates: start: 20240408
  2. SPORANOX [Suspect]
     Active Substance: ITRACONAZOLE
     Route: 048
     Dates: start: 20240409
  3. SPORANOX [Suspect]
     Active Substance: ITRACONAZOLE
     Route: 048
     Dates: start: 20240421, end: 20240422

REACTIONS (1)
  - Arthritis [Recovered/Resolved]
